FAERS Safety Report 4613670-X (Version None)
Quarter: 2005Q1

REPORT INFORMATION
  Report Type: 
  Country: None (occurrence: None)
  Receive Date: 20050321
  Receipt Date: 20050310
  Transmission Date: 20050727
  Serious: Yes (Hospitalization)
  Sender: FDA-Public Use
  Company Number: US-BRISTOL-MYERS SQUIBB COMPANY-12893517

PATIENT
  Age: 48 Year
  Sex: Female
  Weight: 62 kg

DRUGS (3)
  1. PARAPLATIN [Suspect]
     Indication: OVARIAN CANCER
     Dosage: DOSE: AUC 5 (MG/ML-MIN)
     Route: 042
     Dates: start: 20040825, end: 20040825
  2. TLK286 [Suspect]
     Indication: OVARIAN CANCER
     Route: 042
     Dates: start: 20040825, end: 20040825
  3. PERCOCET [Concomitant]

REACTIONS (3)
  - ANAEMIA [None]
  - SYNCOPE [None]
  - WRIST FRACTURE [None]
